FAERS Safety Report 4539483-5 (Version None)
Quarter: 2004Q4

REPORT INFORMATION
  Report Type: 
  Country: None (occurrence: None)
  Receive Date: 20041228
  Receipt Date: 20041228
  Transmission Date: 20050328
  Serious: No
  Sender: FDA-Public Use
  Company Number: None

PATIENT

DRUGS (2)
  1. ALBUTEROL [Suspect]
     Dosage: AEROSO/METERED
  2. ALBUTEROL [Suspect]
     Dosage: SOLUTION

REACTIONS (1)
  - MEDICATION ERROR [None]
